FAERS Safety Report 7757166-5 (Version None)
Quarter: 2011Q3

REPORT INFORMATION
  Report Type: 
  Country: None (occurrence: None)
  Receive Date: 20110916
  Receipt Date: 20110907
  Transmission Date: 20111222
  Serious: Yes (Other)
  Sender: FDA-Public Use
  Company Number: US-JNJFOC-20110904752

PATIENT
  Age: 54 Year
  Sex: Female
  Weight: 54.43 kg

DRUGS (3)
  1. IMODIUM MULTI-SYMPTOM RELIEF [Suspect]
     Route: 048
  2. IMODIUM MULTI-SYMPTOM RELIEF [Suspect]
     Indication: DIARRHOEA
     Dosage: ACCORDING TO DIRECTIONS
     Route: 048
     Dates: start: 20110902, end: 20110905
  3. POTASSIUM [Concomitant]
     Indication: DIARRHOEA
     Route: 065

REACTIONS (3)
  - DIARRHOEA [None]
  - DRUG INEFFECTIVE [None]
  - WEIGHT DECREASED [None]
